FAERS Safety Report 6355936-1 (Version None)
Quarter: 2009Q3

REPORT INFORMATION
  Report Type: 
  Country: None (occurrence: None)
  Receive Date: 20090911
  Receipt Date: 20090911
  Transmission Date: 20100115
  Serious: Yes (Other)
  Sender: FDA-Public Use
  Company Number: None

PATIENT
  Sex: Male
  Weight: 70.3075 kg

DRUGS (2)
  1. LEVAQUIN [Suspect]
     Indication: BACTERIAL INFECTION
     Dosage: ONE DAILY ORAL
     Route: 048
  2. LEVAQUIN [Suspect]
     Indication: EPIDIDYMITIS
     Dosage: ONE DAILY ORAL
     Route: 048

REACTIONS (2)
  - MUSCLE DISORDER [None]
  - TENDON DISORDER [None]
